FAERS Safety Report 15560639 (Version 1)
Quarter: 2018Q4

REPORT INFORMATION
  Report Type: Spontaneous
  Country: US (occurrence: US)
  Receive Date: 20181029
  Receipt Date: 20181029
  Transmission Date: 20190205
  Serious: No
  Sender: FDA-Public Use
  Company Number: US-BECTON DICKINSON-2018BDN00151

PATIENT

DRUGS (1)
  1. BD E-Z SCRUB (CHLORHEXIDINE GLUCONATE) [Suspect]
     Active Substance: CHLORHEXIDINE GLUCONATE
     Indication: INFECTION PROPHYLAXIS
     Route: 061

REACTIONS (2)
  - Skin irritation [Recovered/Resolved]
  - Occupational exposure to product [Recovered/Resolved]
